FAERS Safety Report 19001690 (Version 1)
Quarter: 2021Q1

REPORT INFORMATION
  Report Type: Report from Study
  Country: CA (occurrence: CA)
  Receive Date: 20210312
  Receipt Date: 20210312
  Transmission Date: 20210420
  Serious: Yes (Death, Other)
  Sender: FDA-Public Use
  Company Number: CA-JNJFOC-20210316059

PATIENT

DRUGS (1)
  1. REMICADE [Suspect]
     Active Substance: INFLIXIMAB
     Indication: CROHN^S DISEASE
     Route: 064

REACTIONS (3)
  - Umbilical cord around neck [Fatal]
  - Foetal exposure during pregnancy [Recovered/Resolved]
  - Foetal heart rate abnormal [Fatal]

NARRATIVE: CASE EVENT DATE: 20210303
